FAERS Safety Report 5090416-5 (Version None)
Quarter: 2006Q3

REPORT INFORMATION
  Report Type: 
  Country: None (occurrence: None)
  Receive Date: 20060828
  Receipt Date: 20060501
  Transmission Date: 20061208
  Serious: No
  Sender: FDA-Public Use
  Company Number: US-GLAXOSMITHKLINE-A0603835A

PATIENT
  Age: 37 Year
  Sex: Female

DRUGS (4)
  1. WELLBUTRIN XL [Suspect]
     Dosage: 150MG PER DAY
     Route: 048
  2. SYNTHROID [Concomitant]
  3. ALCOHOL [Concomitant]
  4. BIRTH CONTROL [Concomitant]

REACTIONS (2)
  - ABASIA [None]
  - AMNESIA [None]
